FAERS Safety Report 5972322-4 (Version None)
Quarter: 2008Q4

REPORT INFORMATION
  Report Type: 
  Country: None (occurrence: None)
  Receive Date: 20081201
  Receipt Date: 20081001
  Transmission Date: 20090506
  Serious: No
  Sender: FDA-Public Use
  Company Number: US-TEVA-177053USA

PATIENT
  Age: 79 Year
  Sex: Female

DRUGS (6)
  1. SALBUTAMOL SULFATE INHALATION, 0.09 MG [Suspect]
     Dosage: 1-2 PUFFS EVERY 4-6 HOURS AS NEEDED
     Route: 055
     Dates: end: 20080801
  2. SERETIDE                           /01420901/ [Concomitant]
  3. LEVOTHYROXINE SODIUM [Concomitant]
  4. DYAZIDE [Concomitant]
  5. PANTOPRAZOLE SODIUM [Concomitant]
  6. POTASSIUM CHLORIDE [Concomitant]

REACTIONS (4)
  - BLOOD PRESSURE INCREASED [None]
  - DYSPNOEA [None]
  - TREMOR [None]
  - VISION BLURRED [None]
